FAERS Safety Report 12322297 (Version 1)
Quarter: 2016Q2

REPORT INFORMATION
  Report Type: Spontaneous
  Country: HU (occurrence: HU)
  Receive Date: 20160502
  Receipt Date: 20160502
  Transmission Date: 20160815
  Serious: Yes (Death, Hospitalization)
  Sender: FDA-Public Use
  Company Number: HU-ACTELION-A-CH2016-135184

PATIENT
  Age: 8 Year
  Sex: Female
  Weight: 22 kg

DRUGS (5)
  1. CONVULEX [Concomitant]
     Active Substance: VALPROIC ACID
     Dosage: UNK
     Dates: end: 20151207
  2. DIAZEPAM. [Concomitant]
     Active Substance: DIAZEPAM
     Dosage: UNK
     Dates: end: 20151207
  3. REVATIO [Concomitant]
     Active Substance: SILDENAFIL CITRATE
     Dosage: UNK
     Dates: end: 20151207
  4. MORPHIN [Concomitant]
     Active Substance: MORPHINE
     Dosage: UNK
     Dates: end: 20151207
  5. TRACLEER [Suspect]
     Active Substance: BOSENTAN
     Indication: PULMONARY ARTERIAL HYPERTENSION
     Dosage: 31.25 MG, BID
     Route: 048
     Dates: start: 201212, end: 20151207

REACTIONS (3)
  - Cardiovascular disorder [Unknown]
  - Cardiac failure [Fatal]
  - Epilepsy [Unknown]

NARRATIVE: CASE EVENT DATE: 20151207
